FAERS Safety Report 9669332 (Version 1)
Quarter: 2013Q4

REPORT INFORMATION
  Report Type: Spontaneous
  Country: FR (occurrence: FR)
  Receive Date: 20131105
  Receipt Date: 20131105
  Transmission Date: 20140711
  Serious: Yes (Hospitalization)
  Sender: FDA-Public Use
  Company Number: FR-JNJFOC-20131014685

PATIENT
  Age: 79 Year
  Sex: Male

DRUGS (8)
  1. HALDOL [Suspect]
     Indication: HYPOCHONDRIASIS
     Route: 048
     Dates: start: 20130819
  2. HALDOL [Suspect]
     Indication: HYPOCHONDRIASIS
     Dosage: 4 TO 10 DROPS IN THE EVENING, SINCE 20 TO 30 YEARS
     Route: 048
     Dates: end: 20130723
  3. COAPROVEL [Suspect]
     Indication: HYPERTENSION
     Route: 048
     Dates: end: 20130718
  4. APROVEL [Suspect]
     Indication: HYPERTENSION
     Route: 048
     Dates: start: 20130718, end: 20130809
  5. PULMICORT 400 TURBUHALER [Concomitant]
     Route: 065
  6. PARACETAMOL [Concomitant]
     Route: 065
  7. XANAX [Concomitant]
     Indication: DEPRESSION
     Route: 065
  8. IMOVANE [Concomitant]
     Indication: DEPRESSION
     Route: 065

REACTIONS (5)
  - Hyponatraemia [Recovering/Resolving]
  - Malaise [Unknown]
  - Blood osmolarity decreased [Recovering/Resolving]
  - Insomnia [Unknown]
  - Hypochloraemia [Unknown]
